FAERS Safety Report 23107172 (Version 1)
Quarter: 2023Q4

REPORT INFORMATION
  Report Type: Spontaneous
  Country: FR (occurrence: None)
  Receive Date: 20231026
  Receipt Date: 20231026
  Transmission Date: 20240109
  Serious: Yes (Other)
  Sender: FDA-Public Use
  Company Number: 2023A238541

PATIENT
  Age: 74 Year
  Sex: Male
  Weight: 70 kg

DRUGS (3)
  1. IMFINZI [Suspect]
     Active Substance: DURVALUMAB
     Indication: Bronchial carcinoma
     Dosage: 2 CYCLES
     Route: 042
     Dates: start: 20230608, end: 20230706
  2. CARBOPLATIN [Suspect]
     Active Substance: CARBOPLATIN
     Indication: Bronchial carcinoma
     Route: 042
     Dates: start: 20230608
  3. ETOPOSIDE [Suspect]
     Active Substance: ETOPOSIDE
     Indication: Bronchial carcinoma
     Route: 042
     Dates: start: 20230608

REACTIONS (1)
  - Cholestatic liver injury [Recovered/Resolved]

NARRATIVE: CASE EVENT DATE: 20230725
